FAERS Safety Report 5772148-0 (Version None)
Quarter: 2008Q2

REPORT INFORMATION
  Report Type: 
  Country: None (occurrence: None)
  Receive Date: 20080613
  Receipt Date: 20080604
  Transmission Date: 20081010
  Serious: Yes (Hospitalization, Other)
  Sender: FDA-Public Use
  Company Number: US-ROCHE-562023

PATIENT
  Sex: Male
  Weight: 90.3 kg

DRUGS (6)
  1. PEGASYS [Suspect]
     Dosage: FORMULATION: INJECTION
     Route: 058
     Dates: start: 20070801
  2. PEGASYS [Suspect]
     Route: 058
  3. PEGASYS [Suspect]
     Route: 058
     Dates: end: 20071127
  4. COPEGUS [Suspect]
     Route: 048
     Dates: start: 20070801
  5. COPEGUS [Suspect]
     Route: 048
  6. COPEGUS [Suspect]
     Route: 048
     Dates: end: 20071127

REACTIONS (6)
  - ANAEMIA [None]
  - BLOOD TEST ABNORMAL [None]
  - DRUG INEFFECTIVE [None]
  - GALLBLADDER OPERATION [None]
  - HEPATIC FAILURE [None]
  - THROMBOCYTOPENIA [None]
